FAERS Safety Report 20469827 (Version 1)
Quarter: 2022Q1

REPORT INFORMATION
  Report Type: Spontaneous
  Country: US (occurrence: None)
  Receive Date: 20220213
  Receipt Date: 20220213
  Transmission Date: 20220423
  Serious: Yes (Life-Threatening, Other)
  Sender: FDA-Public Use
  Company Number: None

PATIENT
  Sex: Female
  Weight: 99 kg

DRUGS (3)
  1. TOPAMAX [Suspect]
     Active Substance: TOPIRAMATE
     Indication: Migraine
     Dosage: OTHER QUANTITY : 1 TABLET(S);?FREQUENCY : DAILY;?
     Route: 048
     Dates: start: 20220211, end: 20220213
  2. TOPAMAX [Suspect]
     Active Substance: TOPIRAMATE
     Indication: Seizure
  3. TOPAMAX [Suspect]
     Active Substance: TOPIRAMATE
     Indication: Weight decreased

REACTIONS (2)
  - Suicidal ideation [None]
  - Homicidal ideation [None]
